FAERS Safety Report 5153474-5 (Version None)
Quarter: 2006Q4

REPORT INFORMATION
  Report Type: 
  Country: None (occurrence: None)
  Receive Date: 20061117
  Receipt Date: 20061030
  Transmission Date: 20070319
  Serious: Yes (Hospitalization)
  Sender: FDA-Public Use
  Company Number: IT-ABBOTT-06P-083-0348580-00

PATIENT
  Sex: Female
  Weight: 55 kg

DRUGS (3)
  1. HUMIRA [Suspect]
     Indication: RHEUMATOID ARTHRITIS
     Route: 058
     Dates: start: 20050518
  2. HUMIRA [Suspect]
     Dates: start: 20050403, end: 20050518
  3. PIROXICAM [Concomitant]
     Indication: RHEUMATOID ARTHRITIS
     Dates: start: 20050914

REACTIONS (3)
  - INTERVERTEBRAL DISC DISORDER [None]
  - NECK PAIN [None]
  - PAIN IN EXTREMITY [None]
